FAERS Safety Report 9846700 (Version 3)
Quarter: 2014Q2

REPORT INFORMATION
  Report Type: Spontaneous
  Country: US (occurrence: US)
  Receive Date: 20140127
  Receipt Date: 20140520
  Transmission Date: 20141212
  Serious: No
  Sender: FDA-Public Use
  Company Number: US-009507513-1401USA011370

PATIENT
  Age: 70 Year
  Sex: Female
  Weight: 85.26 kg

DRUGS (3)
  1. OXYTROL FOR WOMEN [Suspect]
     Indication: BLADDER DISORDER
     Dosage: UNK, QD
     Route: 062
     Dates: start: 201311, end: 20131210
  2. CELEBREX [Concomitant]
     Indication: PAIN
     Dosage: UNK, UNKNOWN
  3. CELEBREX [Concomitant]
     Indication: STRESS

REACTIONS (2)
  - Incorrect drug administration duration [Unknown]
  - Drug ineffective [Unknown]
